FAERS Safety Report 8838110 (Version 1)
Quarter: 2012Q4

REPORT INFORMATION
  Report Type: Report from Study
  Country: JP (occurrence: JP)
  Receive Date: 20121012
  Receipt Date: 20121012
  Transmission Date: 20130627
  Serious: Yes (Other)
  Sender: FDA-Public Use
  Company Number: JP-VERTEX PHARMACEUTICAL INC.-2012-022577

PATIENT
  Age: 66 Year
  Sex: Female

DRUGS (5)
  1. VX-950 [Suspect]
     Indication: HEPATITIS C
     Dosage: 1250 mg, UNK
     Route: 048
     Dates: start: 20120705, end: 20120820
  2. PEGINTERFERON ALFA-2B [Suspect]
     Indication: HEPATITIS C
     Dosage: 1.5 UNK, UNK
     Route: 058
     Dates: end: 20120903
  3. RIBAVIRIN [Concomitant]
     Dosage: 400 mg, qd
     Route: 048
     Dates: end: 20120903
  4. AMLODIN [Concomitant]
     Dosage: 2.5 mg, qd
     Route: 048
     Dates: end: 20120807
  5. LOCHOL                             /01224502/ [Concomitant]
     Dosage: 10 mg, qd
     Route: 048

REACTIONS (1)
  - Retinopathy [Unknown]
